FAERS Safety Report 5339984-6 (Version None)
Quarter: 2007Q2

REPORT INFORMATION
  Report Type: 
  Country: None (occurrence: None)
  Receive Date: 20070531
  Receipt Date: 20070523
  Transmission Date: 20071010
  Serious: Yes (Other)
  Sender: FDA-Public Use
  Company Number: US-AVENTIS-200618834US

PATIENT
  Age: 31 Year
  Sex: Female
  Weight: 127.27 kg

DRUGS (9)
  1. LOVENOX [Suspect]
  2. LOVENOX [Suspect]
  3. LOVENOX [Suspect]
     Dates: start: 20070322
  4. LOVENOX [Suspect]
     Dates: start: 20070501, end: 20070501
  5. LOVENOX [Suspect]
  6. LOVENOX [Suspect]
  7. LOVENOX [Suspect]
     Dates: start: 20070322
  8. LOVENOX [Suspect]
     Dates: start: 20070501, end: 20070501
  9. ^LOT OF MEDICATION^ [Concomitant]
     Dosage: DOSE: UNK

REACTIONS (3)
  - ABORTION SPONTANEOUS [None]
  - DRUG EXPOSURE DURING PREGNANCY [None]
  - SWELLING [None]
